FAERS Safety Report 25051011 (Version 1)
Quarter: 2025Q1

REPORT INFORMATION
  Report Type: Spontaneous
  Country: US (occurrence: US)
  Receive Date: 20250307
  Receipt Date: 20250307
  Transmission Date: 20250409
  Serious: Yes (Other)
  Sender: NOVARTIS
  Company Number: US-002147023-NVSC2025US035622

PATIENT
  Sex: Female

DRUGS (1)
  1. LEQVIO [Suspect]
     Active Substance: INCLISIRAN SODIUM
     Indication: Product used for unknown indication
     Route: 065

REACTIONS (7)
  - Neoplasm malignant [Unknown]
  - Erythema [Unknown]
  - Pruritus [Unknown]
  - Skin exfoliation [Unknown]
  - Rash [Unknown]
  - Vulvovaginal erythema [Unknown]
  - Vulvovaginal burning sensation [Unknown]
